FAERS Safety Report 6102670-9 (Version None)
Quarter: 2009Q1

REPORT INFORMATION
  Report Type: 
  Country: None (occurrence: None)
  Receive Date: 20090304
  Receipt Date: 20081211
  Transmission Date: 20090719
  Serious: No
  Sender: FDA-Public Use
  Company Number: A0759998A

PATIENT
  Age: 67 Year
  Sex: Male

DRUGS (10)
  1. REQUIP [Suspect]
     Indication: RESTLESS LEGS SYNDROME
     Dosage: .25MG PER DAY
     Route: 048
     Dates: start: 20081209
  2. AMIODARONE HCL [Concomitant]
  3. COREG [Concomitant]
  4. SPIRONOLACTONE [Concomitant]
  5. LISINOPRIL [Concomitant]
  6. ZOCOR [Concomitant]
  7. ASPIRIN [Concomitant]
  8. VITAMIN D [Concomitant]
  9. ZINC [Concomitant]
  10. NIACIN [Concomitant]

REACTIONS (4)
  - DYSKINESIA [None]
  - EXPIRED DRUG ADMINISTERED [None]
  - HEADACHE [None]
  - INITIAL INSOMNIA [None]
